FAERS Safety Report 15497661 (Version 1)
Quarter: 2018Q4

REPORT INFORMATION
  Report Type: Spontaneous
  Country: US (occurrence: US)
  Receive Date: 20181005
  Receipt Date: 20181005
  Transmission Date: 20190205
  Serious: Yes (Other)
  Sender: FDA-Public Use
  Company Number: None

PATIENT
  Age: 56 Year
  Sex: Male
  Weight: 112.5 kg

DRUGS (12)
  1. LEVOCETIRIZINE [Concomitant]
     Active Substance: LEVOCETIRIZINE
  2. OXYCODONE - ACETAMINOHEN [Concomitant]
  3. LORATIDINE [Concomitant]
     Active Substance: LORATADINE
  4. SYMBICORT [Concomitant]
     Active Substance: BUDESONIDE\FORMOTEROL FUMARATE DIHYDRATE
  5. GLEEVEC [Suspect]
     Active Substance: IMATINIB MESYLATE
     Indication: MYELOPROLIFERATIVE NEOPLASM
     Route: 048
     Dates: start: 20170922
  6. CLONAZAPAM [Concomitant]
     Active Substance: CLONAZEPAM
  7. COMBIVENT [Concomitant]
     Active Substance: ALBUTEROL SULFATE\IPRATROPIUM BROMIDE
  8. METHOCARBAMOL. [Concomitant]
     Active Substance: METHOCARBAMOL
  9. DOXEPIN [Concomitant]
     Active Substance: DOXEPIN
  10. FLUTICASONE. [Concomitant]
     Active Substance: FLUTICASONE
  11. GLEEVEC [Suspect]
     Active Substance: IMATINIB MESYLATE
     Indication: MAST CELL ACTIVATION SYNDROME
     Route: 048
     Dates: start: 20170922
  12. GABAPENTIN. [Concomitant]
     Active Substance: GABAPENTIN

REACTIONS (3)
  - Nausea [None]
  - Fatigue [None]
  - Headache [None]

NARRATIVE: CASE EVENT DATE: 20181004
